FAERS Safety Report 14814268 (Version 2)
Quarter: 2018Q2

REPORT INFORMATION
  Report Type: Spontaneous
  Country: GB (occurrence: GB)
  Receive Date: 20180426
  Receipt Date: 20180628
  Transmission Date: 20180711
  Serious: Yes (Hospitalization, Other)
  Sender: FDA-Public Use
  Company Number: GB-SA-2018SA115269

PATIENT
  Age: 88 Year
  Sex: Male

DRUGS (1)
  1. BCG FOR IMMUNOTHERAPY [Suspect]
     Active Substance: BACILLUS CALMETTE-GUERIN ANTIGEN, UNSPECIFIED SUBSTRAIN
     Indication: BLADDER CANCER
     Dosage: UNK UNK,UNK
     Route: 065

REACTIONS (13)
  - Haematuria [Unknown]
  - Fatigue [Unknown]
  - Decreased appetite [Unknown]
  - Cough [Recovering/Resolving]
  - Drug administration error [Unknown]
  - Granuloma [Unknown]
  - Lung consolidation [Unknown]
  - Dyspnoea [Recovered/Resolved]
  - Malaise [Recovering/Resolving]
  - Weight decreased [Unknown]
  - Disseminated Bacillus Calmette-Guerin infection [Unknown]
  - Pleural effusion [Not Recovered/Not Resolved]
  - Pulmonary mass [Unknown]
